FAERS Safety Report 8525995-6 (Version None)
Quarter: 2012Q3

REPORT INFORMATION
  Report Type: 
  Country: None (occurrence: None)
  Receive Date: 20120720
  Receipt Date: 20120719
  Transmission Date: 20120928
  Serious: Yes (Other)
  Sender: FDA-Public Use
  Company Number: CHPA2012US015527

PATIENT
  Age: 60 Year
  Sex: Male

DRUGS (1)
  1. VOLTAREN [Suspect]
     Indication: ARTHRALGIA
     Dosage: A DAB, 2-3 TIMES DAILY
     Route: 061

REACTIONS (4)
  - HERPES ZOSTER [None]
  - MUSCULOSKELETAL CHEST PAIN [None]
  - OFF LABEL USE [None]
  - DRUG ADMINISTERED AT INAPPROPRIATE SITE [None]
